FAERS Safety Report 9236718 (Version 1)
Quarter: 2013Q2

REPORT INFORMATION
  Report Type: Spontaneous
  Country: US (occurrence: US)
  Receive Date: 20130417
  Receipt Date: 20130417
  Transmission Date: 20140414
  Serious: No
  Sender: FDA-Public Use
  Company Number: US-ASTRAZENECA-2013SE21184

PATIENT
  Sex: 0

DRUGS (5)
  1. ZESTRIL [Suspect]
     Route: 048
  2. METFORMIN [Suspect]
     Route: 048
  3. GLUCOPHAGE [Concomitant]
  4. GLYNASE [Concomitant]
  5. BYSTOLIC [Concomitant]

REACTIONS (8)
  - Back pain [Unknown]
  - Pain in extremity [Unknown]
  - Pain in extremity [Unknown]
  - Night sweats [Unknown]
  - Disorientation [Unknown]
  - Blood glucose fluctuation [Unknown]
  - Nausea [Unknown]
  - Drug ineffective [Unknown]
